FAERS Safety Report 4425488-1 (Version None)
Quarter: 2004Q3

REPORT INFORMATION
  Report Type: 
  Country: None (occurrence: None)
  Receive Date: 20040810
  Receipt Date: 20040723
  Transmission Date: 20050211
  Serious: Yes (Other)
  Sender: FDA-Public Use
  Company Number: SUS1-2004-00433

PATIENT
  Age: 5 Year
  Sex: Male

DRUGS (4)
  1. ADDERALL XR 30 [Suspect]
     Indication: ATTENTION DEFICIT/HYPERACTIVITY DISORDER
     Dosage: 5MG UP TO 20MG ONCE DAILY
     Dates: end: 20040723
  2. ADDERALL XR 30 [Suspect]
     Indication: OPPOSITIONAL DEFIANT DISORDER
     Dosage: 5MG UP TO 20MG ONCE DAILY
     Dates: end: 20040723
  3. TENEX [Concomitant]
  4. ALBUTEROL [Concomitant]

REACTIONS (3)
  - AGGRESSION [None]
  - SELF INJURIOUS BEHAVIOUR [None]
  - SUICIDE ATTEMPT [None]
